FAERS Safety Report 4882624-0 (Version None)
Quarter: 2006Q1

REPORT INFORMATION
  Report Type: 
  Country: None (occurrence: None)
  Receive Date: 20060117
  Receipt Date: 20050325
  Transmission Date: 20060701
  Serious: Yes (Hospitalization, Other)
  Sender: FDA-Public Use
  Company Number: US-MERCK-0503USA04981

PATIENT
  Age: 56 Year
  Sex: Male
  Weight: 73 kg

DRUGS (27)
  1. VIOXX [Suspect]
     Indication: PAIN
     Route: 048
     Dates: start: 19990101, end: 20020101
  2. FOLIC ACID [Concomitant]
     Route: 065
  3. PRAVACHOL [Concomitant]
     Route: 065
  4. ZETIA [Concomitant]
     Route: 065
  5. AMITRIPTYLINE HYDROCHLORIDE [Concomitant]
     Route: 065
  6. CELEBREX [Concomitant]
     Route: 065
  7. BEXTRA [Concomitant]
     Route: 065
  8. MAG-OX 400 TABLETS [Concomitant]
     Route: 065
  9. NEURONTIN [Concomitant]
     Route: 065
  10. NITROQUICK [Concomitant]
     Route: 065
  11. IBUPROFEN [Concomitant]
     Route: 065
  12. TETRACYCLINE [Concomitant]
     Route: 065
  13. FLAGYL [Concomitant]
     Route: 065
  14. LEVAQUIN [Concomitant]
     Route: 065
  15. PHENAZOPYRIDINE HYDROCHLORIDE [Concomitant]
     Route: 065
  16. PHENERGAN EXPECTORANT W/ CODEINE [Concomitant]
     Route: 065
  17. COLACE [Concomitant]
     Route: 065
  18. ECOTRIN [Concomitant]
     Route: 065
  19. PLETAL [Concomitant]
     Route: 065
  20. [THERAPY UNSPECIFIED] [Concomitant]
     Route: 065
  21. DIGITEK [Concomitant]
     Route: 065
  22. OXYCONTIN [Concomitant]
     Route: 065
  23. VITAMIN D (UNSPECIFIED) [Concomitant]
     Route: 065
  24. CALCIUM (UNSPECIFIED) [Concomitant]
     Route: 065
  25. VIAGRA [Concomitant]
     Route: 065
  26. ULTRAM [Concomitant]
     Route: 065
  27. TYLENOL W/ CODEINE NO. 3 [Concomitant]
     Route: 065

REACTIONS (9)
  - ABDOMINAL PAIN [None]
  - ANGINA UNSTABLE [None]
  - BACK DISORDER [None]
  - CARDIOMYOPATHY [None]
  - CORONARY ARTERY DISEASE [None]
  - HYPOAESTHESIA [None]
  - MYOCARDIAL INFARCTION [None]
  - PULSE ABNORMAL [None]
  - THROMBOSIS [None]
